FAERS Safety Report 5632998-8 (Version None)
Quarter: 2008Q1

REPORT INFORMATION
  Report Type: 
  Country: None (occurrence: None)
  Receive Date: 20080214
  Receipt Date: 20071217
  Transmission Date: 20080703
  Serious: Yes (Other)
  Sender: FDA-Public Use
  Company Number: DEPFP-P-20070011

PATIENT
  Age: 54 Year
  Sex: Female

DRUGS (5)
  1. NAVELBINE [Suspect]
     Indication: BREAST CANCER METASTATIC
     Dosage: 30 MG/M2 DAILY IV
     Route: 042
     Dates: start: 20071001
  2. MULTI-VITAMIN [Concomitant]
  3. CORTISONE [Concomitant]
  4. BONDRONAT [Concomitant]
  5. SELEN E-VITAMIN [Concomitant]

REACTIONS (4)
  - DRY EYE [None]
  - EYE PAIN [None]
  - INSOMNIA [None]
  - SLEEP DISORDER [None]
